FAERS Safety Report 17846169 (Version 1)
Quarter: 2020Q2

REPORT INFORMATION
  Report Type: Spontaneous
  Country: GB (occurrence: GB)
  Receive Date: 20200601
  Receipt Date: 20200601
  Transmission Date: 20200714
  Serious: Yes (Hospitalization, Other)
  Sender: FDA-Public Use
  Company Number: GB-AMGEN-GBRSP2020084138

PATIENT
  Age: 10 Year
  Sex: Male

DRUGS (5)
  1. FLUDARABINE [Concomitant]
     Active Substance: FLUDARABINE PHOSPHATE
  2. CYCLOPHOSPHAMIDE. [Concomitant]
     Active Substance: CYCLOPHOSPHAMIDE
     Dosage: UNK
  3. FILGRASTIM [Suspect]
     Active Substance: FILGRASTIM
     Indication: INFANTILE GENETIC AGRANULOCYTOSIS
     Dosage: UNK
     Route: 065
  4. TACROLIMUS. [Concomitant]
     Active Substance: TACROLIMUS
     Dosage: UNK
  5. MYCOPHENOLATE MOFETIL. [Concomitant]
     Active Substance: MYCOPHENOLATE MOFETIL
     Dosage: UNK

REACTIONS (11)
  - Pain [Recovering/Resolving]
  - C-reactive protein increased [Recovering/Resolving]
  - Graft versus host disease in skin [Recovering/Resolving]
  - Intestinal mass [Recovering/Resolving]
  - Gene mutation [Unknown]
  - Neutropenia [Recovered/Resolved]
  - Neutropenic sepsis [Recovering/Resolving]
  - Weight decreased [Recovering/Resolving]
  - Intestinal obstruction [Recovering/Resolving]
  - Crohn^s disease [Recovering/Resolving]
  - Lymphopenia [Recovered/Resolved]
